FAERS Safety Report 15139106 (Version 1)
Quarter: 2018Q3

REPORT INFORMATION
  Report Type: Spontaneous
  Country: ES (occurrence: ES)
  Receive Date: 20180713
  Receipt Date: 20180713
  Transmission Date: 20181010
  Serious: Yes (Disabling)
  Sender: FDA-Public Use
  Company Number: ES-AUROBINDO-AUR-APL-2018-035362

PATIENT
  Age: 83 Year
  Sex: Female

DRUGS (5)
  1. PREDNISONE. [Concomitant]
     Active Substance: PREDNISONE
     Indication: RENAL TRANSPLANT
     Dosage: 5 MILLIGRAM
     Route: 048
     Dates: start: 201507
  2. CARDURAN NEO [Concomitant]
     Active Substance: DOXAZOSIN MESYLATE
     Indication: ESSENTIAL HYPERTENSION
     Dosage: 8 MILLIGRAM
     Route: 048
     Dates: start: 201510
  3. ADIRO [Concomitant]
     Active Substance: ASPIRIN
     Indication: PRODUCT USED FOR UNKNOWN INDICATION
     Dosage: 100 MILLIGRAM
     Route: 048
     Dates: start: 20120215
  4. AMIODARONE [Suspect]
     Active Substance: AMIODARONE
     Indication: PRODUCT USED FOR UNKNOWN INDICATION
     Dosage: 200 MILLIGRAM, DAILY
     Route: 048
     Dates: start: 2010, end: 201611
  5. ADOPORT [Concomitant]
     Active Substance: TACROLIMUS
     Indication: RENAL TRANSPLANT
     Dosage: 5 MILLIGRAM
     Route: 048
     Dates: start: 201507

REACTIONS (1)
  - Idiopathic pneumonia syndrome [Recovering/Resolving]

NARRATIVE: CASE EVENT DATE: 201702
